FAERS Safety Report 18891959 (Version 4)
Quarter: 2021Q3

REPORT INFORMATION
  Report Type: Report from Study
  Country: BR (occurrence: BR)
  Receive Date: 20210215
  Receipt Date: 20210816
  Transmission Date: 20211014
  Serious: Yes (Life-Threatening, Hospitalization, Disabling, Other)
  Sender: FDA-Public Use
  Company Number: PHHY2019BR191366

PATIENT
  Age: 46 Year
  Sex: Female

DRUGS (9)
  1. COSENTYX [Suspect]
     Active Substance: SECUKINUMAB
     Dosage: 300 MG, QMO (2 INJECTIONS)
     Route: 065
     Dates: start: 20201016
  2. COSENTYX [Suspect]
     Active Substance: SECUKINUMAB
     Dosage: 150 MG, QW
     Route: 065
     Dates: start: 20200820, end: 20200917
  3. COSENTYX [Suspect]
     Active Substance: SECUKINUMAB
     Dosage: UNK
     Route: 065
     Dates: start: 20210204
  4. HUMIRA [Suspect]
     Active Substance: ADALIMUMAB
     Indication: ANKYLOSING SPONDYLITIS
     Dosage: 1 DF, Q2W (1 EVERY 15 DAYS)
     Route: 065
     Dates: end: 20200325
  5. CLARITHROMYCIN. [Concomitant]
     Active Substance: CLARITHROMYCIN
     Indication: PRODUCT USED FOR UNKNOWN INDICATION
     Dosage: UNK
     Route: 065
  6. COSENTYX [Suspect]
     Active Substance: SECUKINUMAB
     Indication: ANKYLOSING SPONDYLITIS
     Dosage: UNK
     Route: 065
     Dates: start: 20190809, end: 20200115
  7. COSENTYX [Suspect]
     Active Substance: SECUKINUMAB
     Dosage: 150 MG, QW
     Route: 065
     Dates: start: 20190820
  8. COSENTYX [Suspect]
     Active Substance: SECUKINUMAB
     Dosage: 300 MG, QMO
     Route: 065
     Dates: end: 20200115
  9. CELEBRA [Concomitant]
     Active Substance: CELECOXIB
     Indication: PRODUCT USED FOR UNKNOWN INDICATION
     Dosage: UNK
     Route: 065

REACTIONS (40)
  - Blood pressure increased [Unknown]
  - Chest discomfort [Unknown]
  - Pulmonary congestion [Unknown]
  - Depression [Unknown]
  - Blood pressure fluctuation [Unknown]
  - Insomnia [Not Recovered/Not Resolved]
  - Peripheral swelling [Not Recovered/Not Resolved]
  - Drug ineffective [Unknown]
  - Feeling abnormal [Unknown]
  - Malaise [Unknown]
  - Dyspnoea [Unknown]
  - Fatigue [Recovering/Resolving]
  - Pain in extremity [Not Recovered/Not Resolved]
  - Haematuria [Unknown]
  - Arthralgia [Not Recovered/Not Resolved]
  - Injection site pain [Unknown]
  - Ear disorder [Unknown]
  - Pharyngitis [Unknown]
  - Emotional disorder [Unknown]
  - Movement disorder [Not Recovered/Not Resolved]
  - Confusional state [Unknown]
  - Ear infection [Unknown]
  - Renal disorder [Unknown]
  - Anxiety [Unknown]
  - Dizziness [Unknown]
  - Influenza like illness [Unknown]
  - Discomfort [Unknown]
  - Exercise tolerance decreased [Not Recovered/Not Resolved]
  - Pyrexia [Unknown]
  - Aphasia [Unknown]
  - COVID-19 [Unknown]
  - Arrhythmia [Unknown]
  - Injection site haematoma [Not Recovered/Not Resolved]
  - Pain [Unknown]
  - Stress [Unknown]
  - Headache [Not Recovered/Not Resolved]
  - Oropharyngeal pain [Unknown]
  - Oxygen saturation decreased [Unknown]
  - Back pain [Unknown]
  - Therapeutic product effect decreased [Not Recovered/Not Resolved]

NARRATIVE: CASE EVENT DATE: 20190809
